FAERS Safety Report 11094802 (Version 1)
Quarter: 2015Q2

REPORT INFORMATION
  Report Type: Other
  Country: SI (occurrence: SI)
  Receive Date: 20150506
  Receipt Date: 20150506
  Transmission Date: 20150821
  Serious: Yes (Congenital Anomaly)
  Sender: FDA-Public Use
  Company Number: SI-EMD SERONO-8023592

PATIENT
  Age: 23 Week

DRUGS (5)
  1. HUMAN CHORIONIC GONADOTROPIN [Suspect]
     Active Substance: GONADOTROPHIN, CHORIONIC
     Indication: ASSISTED FERTILISATION
  2. FOLLITROPIN ALFA [Suspect]
     Active Substance: FOLLITROPIN
     Indication: ASSISTED FERTILISATION
  3. CETRORELIX [Suspect]
     Active Substance: CETRORELIX
     Indication: ASSISTED FERTILISATION
  4. CETRORELIX [Suspect]
     Active Substance: CETRORELIX
     Indication: BLOOD LUTEINISING HORMONE ABNORMAL
  5. FOLLITROPIN ALFA [Suspect]
     Active Substance: FOLLITROPIN
     Indication: INFERTILITY FEMALE

REACTIONS (2)
  - Caudal regression syndrome [Unknown]
  - Foetal exposure during pregnancy [Recovered/Resolved]
